FAERS Safety Report 9669918 (Version 1)
Quarter: 2013Q4

REPORT INFORMATION
  Report Type: Spontaneous
  Country: US (occurrence: None)
  Receive Date: 20131104
  Receipt Date: 20131104
  Transmission Date: 20140711
  Serious: Yes (Other)
  Sender: FDA-Public Use
  Company Number: AUR-APL-2013-09134

PATIENT
  Age: 58 Year
  Sex: Male

DRUGS (2)
  1. PRAMIPEXOLE [Suspect]
     Indication: MUSCLE SPASMS
  2. PRAMIPEXOLE [Suspect]
     Indication: RESTLESS LEGS SYNDROME

REACTIONS (7)
  - Pathological gambling [None]
  - Treatment noncompliance [None]
  - Incorrect dose administered [None]
  - Self esteem decreased [None]
  - Family stress [None]
  - Economic problem [None]
  - Drug ineffective [None]
